FAERS Safety Report 23259004 (Version 1)
Quarter: 2023Q4

REPORT INFORMATION
  Report Type: Report from Study
  Country: CN (occurrence: CN)
  Receive Date: 20231204
  Receipt Date: 20231204
  Transmission Date: 20240110
  Serious: Yes (Life-Threatening, Hospitalization)
  Sender: FDA-Public Use
  Company Number: CN-Calliditas-2023CAL01535

PATIENT
  Age: 46 Year
  Sex: Male
  Weight: 90.9 kg

DRUGS (3)
  1. TARPEYO [Suspect]
     Active Substance: BUDESONIDE
     Indication: IgA nephropathy
     Route: 048
     Dates: start: 20230815
  2. METHYLPREDNISOLONE [Concomitant]
     Active Substance: METHYLPREDNISOLONE
  3. IRBESARTAN [Concomitant]
     Active Substance: IRBESARTAN

REACTIONS (6)
  - Headache [Unknown]
  - Hypertension [Unknown]
  - Hypoaesthesia [Unknown]
  - Cerebral venous sinus thrombosis [Unknown]
  - Epilepsy [Unknown]
  - Intracranial pressure increased [Unknown]

NARRATIVE: CASE EVENT DATE: 20231101
